FAERS Safety Report 17211316 (Version 2)
Quarter: 2020Q1

REPORT INFORMATION
  Report Type: Spontaneous
  Country: PT (occurrence: PT)
  Receive Date: 20191228
  Receipt Date: 20200116
  Transmission Date: 20200409
  Serious: Yes (Life-Threatening, Hospitalization, Other)
  Sender: FDA-Public Use
  Company Number: PT-ACCORD-167512

PATIENT
  Age: 71 Year
  Sex: Female

DRUGS (1)
  1. AMITRIPTYLINE [Suspect]
     Active Substance: AMITRIPTYLINE
     Indication: PRODUCT USED FOR UNKNOWN INDICATION
     Dosage: 12 MG/KG

REACTIONS (4)
  - Overdose [Unknown]
  - Coma [Recovered/Resolved]
  - Electrocardiogram QT prolonged [Unknown]
  - Drug level increased [Unknown]
